FAERS Safety Report 16161355 (Version 1)
Quarter: 2019Q2

REPORT INFORMATION
  Report Type: Spontaneous
  Country: DK (occurrence: DK)
  Receive Date: 20190405
  Receipt Date: 20190405
  Transmission Date: 20190711
  Serious: Yes (Other)
  Sender: FDA-Public Use
  Company Number: DK-BIOVITRUM-2019DK0627

PATIENT
  Age: 15 Year
  Sex: Female

DRUGS (2)
  1. KINERET [Suspect]
     Active Substance: ANAKINRA
     Indication: STILL^S DISEASE
     Dosage: 2 MG/KG/DAY
  2. CORTICOSTEROIDS [Concomitant]
     Active Substance: CORTICOSTEROID NOS

REACTIONS (3)
  - Juvenile idiopathic arthritis [Unknown]
  - Drug ineffective [Recovered/Resolved]
  - Haemophagocytic lymphohistiocytosis [Unknown]
